FAERS Safety Report 11568125 (Version 1)
Quarter: 2015Q3

REPORT INFORMATION
  Report Type: Spontaneous
  Country: GB (occurrence: GB)
  Receive Date: 20150929
  Receipt Date: 20150929
  Transmission Date: 20151125
  Serious: Yes (Hospitalization)
  Sender: FDA-Public Use
  Company Number: GB-TEVA-595577ACC

PATIENT
  Age: 70 Year
  Sex: Male

DRUGS (10)
  1. RAMIPRIL. [Suspect]
     Active Substance: RAMIPRIL
  2. BISOPROLOL [Concomitant]
     Active Substance: BISOPROLOL
  3. SPIRONOLACTONE. [Suspect]
     Active Substance: SPIRONOLACTONE
  4. BUMETANIDE. [Suspect]
     Active Substance: BUMETANIDE
     Route: 048
  5. SERTRALINE [Concomitant]
     Active Substance: SERTRALINE HYDROCHLORIDE
  6. GLIPIZIDE. [Concomitant]
     Active Substance: GLIPIZIDE
  7. METFORMIN [Suspect]
     Active Substance: METFORMIN HYDROCHLORIDE
  8. PRAVASTATIN [Concomitant]
     Active Substance: PRAVASTATIN\PRAVASTATIN SODIUM
  9. TAMSULOSIN [Concomitant]
     Active Substance: TAMSULOSIN
  10. FESOTERODINE [Concomitant]
     Active Substance: FESOTERODINE

REACTIONS (1)
  - Acute kidney injury [Recovering/Resolving]
